FAERS Safety Report 13918822 (Version 1)
Quarter: 2017Q3

REPORT INFORMATION
  Report Type: Spontaneous
  Country: US (occurrence: US)
  Receive Date: 20170830
  Receipt Date: 20170830
  Transmission Date: 20171127
  Serious: Yes (Hospitalization, Other)
  Sender: FDA-Public Use
  Company Number: US-KADMON PHARMACEUTICALS, LLC-KAD201305-000552

PATIENT
  Sex: Female

DRUGS (3)
  1. TELAPREVIR [Suspect]
     Active Substance: TELAPREVIR
     Indication: CHRONIC HEPATITIS C
  2. RIBASPHERE [Suspect]
     Active Substance: RIBAVIRIN
     Indication: CHRONIC HEPATITIS C
     Dosage: 1000 MG, DAILY IN DIVIDED DOSES OF 600/400
     Route: 048
     Dates: start: 20130408
  3. PEGINTERFERON ALFA-2A. [Suspect]
     Active Substance: PEGINTERFERON ALFA-2A
     Indication: CHRONIC HEPATITIS C
     Dosage: PRE-FILLED SYRINGES
     Route: 058
     Dates: start: 20130408

REACTIONS (19)
  - Facial pain [Unknown]
  - Cardiac failure congestive [Unknown]
  - Axillary mass [Unknown]
  - Breast mass [Unknown]
  - Throat lesion [Unknown]
  - Arthralgia [Unknown]
  - Contusion [Unknown]
  - Pain [Unknown]
  - Rash [Unknown]
  - Drug effect incomplete [Unknown]
  - Breast pain [Unknown]
  - Myocardial infarction [Unknown]
  - Blister [Unknown]
  - Peripheral swelling [Unknown]
  - Oedema peripheral [Unknown]
  - Breast swelling [Unknown]
  - Swelling [Unknown]
  - Swelling face [Unknown]
  - Weight increased [Unknown]
